FAERS Safety Report 25388858 (Version 1)
Quarter: 2025Q2

REPORT INFORMATION
  Report Type: Spontaneous
  Country: TR (occurrence: TR)
  Receive Date: 20250603
  Receipt Date: 20250603
  Transmission Date: 20250717
  Serious: Yes (Hospitalization, Other)
  Sender: ACCORD
  Company Number: TR-Accord-486931

PATIENT
  Age: 64 Year
  Sex: Female

DRUGS (18)
  1. DOCETAXEL [Suspect]
     Active Substance: DOCETAXEL
     Indication: Invasive breast carcinoma
  2. BISOPROLOL [Concomitant]
     Active Substance: BISOPROLOL
     Indication: Hypertension
  3. IRBESARTAN AND HYDROCHLOROTHIAZIDE [Concomitant]
     Active Substance: HYDROCHLOROTHIAZIDE\IRBESARTAN
     Indication: Hypertension
  4. INSULIN NOS [Concomitant]
     Active Substance: INSULIN NOS
     Indication: Type 2 diabetes mellitus
  5. PERTUZUMAB [Concomitant]
     Active Substance: PERTUZUMAB
     Indication: Invasive breast carcinoma
  6. TRASTUZUMAB [Concomitant]
     Active Substance: TRASTUZUMAB
     Indication: Invasive breast carcinoma
  7. PERTUZUMAB [Concomitant]
     Active Substance: PERTUZUMAB
     Indication: Invasive breast carcinoma
  8. TRASTUZUMAB [Concomitant]
     Active Substance: TRASTUZUMAB
     Indication: Invasive breast carcinoma
  9. DOCETAXEL [Suspect]
     Active Substance: DOCETAXEL
     Indication: Hormone receptor positive breast cancer
  10. DOCETAXEL [Suspect]
     Active Substance: DOCETAXEL
     Indication: HER2 positive breast cancer
  11. TRASTUZUMAB [Concomitant]
     Active Substance: TRASTUZUMAB
     Indication: Hormone receptor positive breast cancer
  12. TRASTUZUMAB [Concomitant]
     Active Substance: TRASTUZUMAB
     Indication: HER2 positive breast cancer
  13. TRASTUZUMAB [Concomitant]
     Active Substance: TRASTUZUMAB
     Indication: Hormone receptor positive breast cancer
  14. TRASTUZUMAB [Concomitant]
     Active Substance: TRASTUZUMAB
     Indication: HER2 positive breast cancer
  15. PERTUZUMAB [Concomitant]
     Active Substance: PERTUZUMAB
     Indication: Hormone receptor positive breast cancer
  16. PERTUZUMAB [Concomitant]
     Active Substance: PERTUZUMAB
     Indication: HER2 positive breast cancer
  17. PERTUZUMAB [Concomitant]
     Active Substance: PERTUZUMAB
     Indication: Hormone receptor positive breast cancer
  18. PERTUZUMAB [Concomitant]
     Active Substance: PERTUZUMAB
     Indication: HER2 positive breast cancer

REACTIONS (1)
  - Necrotising myositis [Recovered/Resolved]
